FAERS Safety Report 15359214 (Version 1)
Quarter: 2018Q3

REPORT INFORMATION
  Report Type: Spontaneous
  Country: DE (occurrence: DE)
  Receive Date: 20180907
  Receipt Date: 20180907
  Transmission Date: 20181010
  Serious: Yes (Hospitalization)
  Sender: FDA-Public Use
  Company Number: PHHY2018DE090771

PATIENT
  Sex: Female

DRUGS (3)
  1. SIMPONI [Suspect]
     Active Substance: GOLIMUMAB
     Indication: RHEUMATOID ARTHRITIS
     Dosage: 50 MG, UNK
     Route: 058
  2. METHOTREXATE. [Suspect]
     Active Substance: METHOTREXATE
     Indication: PRODUCT USED FOR UNKNOWN INDICATION
     Dosage: 5 MG, UNK (DOSAGE FORM: UNSPECIFIED, 5 UNITS UNSPECIFIED)
     Route: 065
  3. SIMPONI [Suspect]
     Active Substance: GOLIMUMAB
     Dosage: 50 MG, UNK
     Route: 058

REACTIONS (3)
  - Spinal osteoarthritis [Recovered/Resolved]
  - Transient ischaemic attack [Recovered/Resolved]
  - Sciatica [Recovered/Resolved]

NARRATIVE: CASE EVENT DATE: 20170215
